FAERS Safety Report 6109153-0 (Version None)
Quarter: 2009Q1

REPORT INFORMATION
  Report Type: 
  Country: None (occurrence: None)
  Receive Date: 20090306
  Receipt Date: 20090306
  Transmission Date: 20090719
  Serious: Yes (Other)
  Sender: FDA-Public Use
  Company Number: None

PATIENT
  Age: 45 Year
  Sex: Male
  Weight: 89.8122 kg

DRUGS (4)
  1. DEXTROAMPHETAMINE 10MG BARR BRA [Suspect]
     Indication: CATAPLEXY
     Dosage: 10 MG TWICE PO TID PO
     Route: 048
     Dates: start: 20090114, end: 20090213
  2. DEXTROAMPHETAMINE 10MG BARR BRA [Suspect]
     Indication: NARCOLEPSY
     Dosage: 10 MG TWICE PO TID PO
     Route: 048
     Dates: start: 20090114, end: 20090213
  3. DEXTROAMPHETAMINE 10MG ETHICS BRAND [Suspect]
     Indication: CATAPLEXY
     Dosage: 10MG TWICE PO TID PO
     Route: 048
     Dates: start: 20090214
  4. DEXTROAMPHETAMINE 10MG ETHICS BRAND [Suspect]
     Indication: NARCOLEPSY
     Dosage: 10MG TWICE PO TID PO
     Route: 048
     Dates: start: 20090214

REACTIONS (1)
  - CATAPLEXY [None]
